FAERS Safety Report 8114768-4 (Version None)
Quarter: 2012Q1

REPORT INFORMATION
  Report Type: 
  Country: None (occurrence: None)
  Receive Date: 20120206
  Receipt Date: 20120131
  Transmission Date: 20120608
  Serious: Yes (Hospitalization)
  Sender: FDA-Public Use
  Company Number: US-CELGENEUS-163-21880-11122475

PATIENT
  Sex: Female

DRUGS (11)
  1. LORTAB [Concomitant]
     Dosage: 5/325
     Route: 065
  2. REVLIMID [Suspect]
     Indication: MULTIPLE MYELOMA
     Dosage: 15 MILLIGRAM
     Route: 048
     Dates: start: 20110801
  3. REVLIMID [Suspect]
     Dosage: 10 MILLIGRAM
     Route: 048
     Dates: start: 20111201, end: 20111201
  4. IBUPROFEN [Concomitant]
     Dosage: 800 MILLIGRAM
     Route: 065
  5. REVLIMID [Suspect]
     Dosage: 5 MILLIGRAM
     Route: 048
     Dates: start: 20120127
  6. COZAAR [Concomitant]
     Dosage: 50 MILLIGRAM
     Route: 065
  7. MULTIVITAMIN [Concomitant]
     Dosage: 6 MILLIGRAM
     Route: 065
  8. MIRALAX [Concomitant]
     Dosage: 1 GRAM
     Route: 065
  9. INDAPAMIDE [Concomitant]
     Dosage: 5 MILLIGRAM
     Route: 065
  10. ASPIRIN [Concomitant]
     Dosage: 81 MILLIGRAM
     Route: 065
  11. NEURONTIN [Concomitant]
     Dosage: 300 MILLIGRAM
     Route: 065

REACTIONS (2)
  - ANAEMIA [None]
  - GENERAL PHYSICAL HEALTH DETERIORATION [None]
